FAERS Safety Report 8887504 (Version 1)
Quarter: 2012Q4

REPORT INFORMATION
  Report Type: Spontaneous
  Country: US (occurrence: None)
  Receive Date: 20121101
  Receipt Date: 20121101
  Transmission Date: 20130627
  Serious: Yes (Hospitalization)
  Sender: FDA-Public Use
  Company Number: None

PATIENT
  Age: 83 Year
  Sex: Female
  Weight: 60.45 kg

DRUGS (1)
  1. XARELTO [Suspect]
     Indication: AFIB
     Dosage: RECENT 
(1.5 TABLET)
     Route: 048

REACTIONS (3)
  - Anaemia [None]
  - Lower gastrointestinal haemorrhage [None]
  - Refusal of treatment by patient [None]
